FAERS Safety Report 9205788 (Version 1)
Quarter: 2013Q2

REPORT INFORMATION
  Report Type: Spontaneous
  Country: US (occurrence: None)
  Receive Date: 20130401
  Receipt Date: 20130401
  Transmission Date: 20140414
  Serious: Yes (Death, Life-Threatening, Hospitalization)
  Sender: FDA-Public Use
  Company Number: FK201300963

PATIENT
  Age: 80 Year
  Sex: Male
  Weight: 67 kg

DRUGS (3)
  1. CEFUROXIME [Suspect]
     Indication: INTERVERTEBRAL DISCITIS
     Route: 042
     Dates: start: 20130207, end: 20130213
  2. TAZOBAC (PIP/TAZO) (PIP/TAZO) [Concomitant]
  3. METRONIDAZOL (METRONIDAZOLE) [Concomitant]

REACTIONS (4)
  - Pseudomembranous colitis [None]
  - Necrotising colitis [None]
  - Sepsis [None]
  - Multi-organ failure [None]
